FAERS Safety Report 7057548-3 (Version None)
Quarter: 2010Q4

REPORT INFORMATION
  Report Type: 
  Country: None (occurrence: None)
  Receive Date: 20101022
  Receipt Date: 20101020
  Transmission Date: 20110411
  Serious: Yes (Life-Threatening, Hospitalization, Other)
  Sender: FDA-Public Use
  Company Number: PHHY2009GB47341

PATIENT
  Sex: Male
  Weight: 72 kg

DRUGS (8)
  1. EXJADE [Suspect]
     Indication: REFRACTORY ANAEMIA WITH RINGED SIDEROBLASTS
     Dosage: 1750 MG, UNK
     Route: 048
     Dates: start: 20091022, end: 20100908
  2. EXJADE [Suspect]
     Indication: IRON OVERLOAD
  3. QUININE [Concomitant]
     Indication: MUSCLE SPASMS
     Dosage: 300 MG, UNK
  4. PROCHLORPERAZINE [Concomitant]
     Indication: NAUSEA
     Dosage: 5 MG, UNK
  5. FUROSEMIDE [Concomitant]
     Indication: HYPERTENSION
     Dosage: 20 MG, UNK
     Route: 048
  6. LOPERAMIDE [Concomitant]
     Dosage: 2 MG, UNK
     Route: 048
     Dates: start: 20100907
  7. CITALOPRAM HYDROBROMIDE [Concomitant]
     Dosage: 100 MG, UNK
     Route: 048
  8. ASCORBIC ACID [Concomitant]
     Dosage: 100 MG, UNK
     Route: 048

REACTIONS (21)
  - ABDOMINAL DISTENSION [None]
  - ABDOMINAL PAIN [None]
  - ALANINE AMINOTRANSFERASE INCREASED [None]
  - APPENDICECTOMY [None]
  - ASTHENIA [None]
  - CONJUNCTIVITIS [None]
  - CONSTIPATION [None]
  - DIARRHOEA [None]
  - FATIGUE [None]
  - GLOMERULAR FILTRATION RATE DECREASED [None]
  - HAEMOGLOBIN DECREASED [None]
  - HEADACHE [None]
  - HOT FLUSH [None]
  - HYPERHIDROSIS [None]
  - LAPAROTOMY [None]
  - MALAISE [None]
  - MUSCLE SPASMS [None]
  - NAUSEA [None]
  - SEPSIS [None]
  - VOMITING [None]
  - YERSINIA BACTERAEMIA [None]
